FAERS Safety Report 8539564-5 (Version None)
Quarter: 2012Q3

REPORT INFORMATION
  Report Type: 
  Country: None (occurrence: None)
  Receive Date: 20120726
  Receipt Date: 20120712
  Transmission Date: 20120928
  Serious: Yes (Hospitalization, Other)
  Sender: FDA-Public Use
  Company Number: DE-ELI_LILLY_AND_COMPANY-DE201207004005

PATIENT
  Age: 53 Year
  Sex: Female

DRUGS (13)
  1. MARCUMAR [Concomitant]
     Dosage: 1.5 MG, UNKNOWN
     Dates: start: 20120208
  2. MARCUMAR [Concomitant]
     Dosage: 3 MG, UNKNOWN
     Dates: start: 20120209, end: 20120210
  3. MARCUMAR [Concomitant]
     Dosage: 3 MG, UNKNOWN
     Dates: start: 20120221
  4. CYMBALTA [Suspect]
     Indication: DEPRESSION
     Dosage: 30 MG, QD
     Dates: start: 20120207, end: 20120214
  5. MARCUMAR [Concomitant]
     Dosage: 3 MG, UNKNOWN
     Dates: start: 20120206, end: 20120207
  6. MARCUMAR [Concomitant]
     Dosage: 1.5 MG, UNKNOWN
     Dates: start: 20120214
  7. PANTOPRAZOLE [Concomitant]
     Dosage: 40 MG, UNKNOWN
     Dates: start: 20050101
  8. MARCUMAR [Concomitant]
     Dosage: 6 MG, UNKNOWN
     Dates: start: 20120215, end: 20120217
  9. URBASON                                 /GFR/ [Concomitant]
     Dosage: 1000 MG, UNKNOWN
     Route: 042
     Dates: start: 20120208, end: 20120210
  10. MARCUMAR [Concomitant]
     Dosage: 9 MG, UNKNOWN
     Dates: start: 20120218, end: 20120219
  11. MARCUMAR [Concomitant]
     Dosage: 1.5 MG, UNKNOWN
     Dates: start: 20120211
  12. MARCUMAR [Concomitant]
     Dosage: 3 MG, UNKNOWN
     Dates: start: 20120212
  13. MARCUMAR [Concomitant]
     Dosage: 4.5 MG, UNKNOWN
     Dates: start: 20120220

REACTIONS (2)
  - DRUG INTERACTION [None]
  - PROTHROMBIN TIME PROLONGED [None]
